FAERS Safety Report 4861457-5 (Version None)
Quarter: 2005Q4

REPORT INFORMATION
  Report Type: 
  Country: None (occurrence: None)
  Receive Date: 20051220
  Receipt Date: 20051209
  Transmission Date: 20060501
  Serious: Yes (Other)
  Sender: FDA-Public Use
  Company Number: CA-BRISTOL-MYERS SQUIBB COMPANY-13219019

PATIENT
  Age: 77 Year
  Sex: Male

DRUGS (15)
  1. TEQUIN [Suspect]
     Route: 048
  2. ACETAMINOPHEN [Concomitant]
  3. ASPIRIN [Concomitant]
     Route: 048
  4. ADVAIR DISKUS 250/50 [Concomitant]
  5. CODEINE [Concomitant]
  6. DILTIAZEM [Concomitant]
     Route: 048
  7. FUROSEMIDE [Concomitant]
     Route: 048
  8. GLYBURIDE [Concomitant]
  9. LACTULOSE [Concomitant]
  10. METFORMIN HCL [Concomitant]
  11. MULTIVITAMINS + MINERALS [Concomitant]
  12. TUBERCULIN PURIFIED PROTEIN DERIVATIVE [Concomitant]
  13. RAMIPRIL [Concomitant]
     Route: 048
  14. SENOKOT [Concomitant]
     Route: 048
  15. SPIRIVA [Concomitant]
     Route: 055

REACTIONS (1)
  - HYPOGLYCAEMIA [None]
